FAERS Safety Report 9710957 (Version 1)
Quarter: 2013Q4

REPORT INFORMATION
  Report Type: Spontaneous
  Country: US (occurrence: US)
  Receive Date: 20131126
  Receipt Date: 20131126
  Transmission Date: 20140711
  Serious: No
  Sender: FDA-Public Use
  Company Number: US-BRISTOL-MYERS SQUIBB COMPANY-19069988

PATIENT
  Sex: Female
  Weight: 101.13 kg

DRUGS (16)
  1. BYETTA [Suspect]
     Indication: TYPE 2 DIABETES MELLITUS
     Dosage: 5MCG
     Route: 058
  2. LANTUS [Concomitant]
  3. AZITHROMYCIN [Concomitant]
     Indication: SINUSITIS
     Dates: start: 201305
  4. XANAX [Concomitant]
  5. IBUPROFEN [Concomitant]
     Dosage: 800- THREE TIMES A DAY BEFORE MEALS
  6. SYNTHROID [Concomitant]
  7. AMITRIPTYLINE [Concomitant]
     Dosage: 25(UNITS NOS).- EVERY 12 HOURS
  8. PROZAC [Concomitant]
  9. ENALAPRIL [Concomitant]
  10. TAMBOCOR [Concomitant]
  11. METFORMIN [Concomitant]
  12. ZOCOR [Concomitant]
  13. LANTUS [Concomitant]
     Dosage: 40 -AT BEDTIME
  14. PROVENTIL [Concomitant]
  15. LORATADINE [Concomitant]
  16. FUROSEMIDE [Concomitant]
     Dosage: 5MG- EACH MORNING

REACTIONS (1)
  - Nausea [Recovered/Resolved]
